FAERS Safety Report 15604293 (Version 2)
Quarter: 2021Q4

REPORT INFORMATION
  Report Type: Report from Study
  Country: None (occurrence: US)
  Receive Date: 20181110
  Receipt Date: 20211005
  Transmission Date: 20220303
  Serious: Yes (Hospitalization, Other)
  Sender: FDA-Public Use
  Company Number: US-ABBVIE-18S-163-2546250-00

PATIENT
  Sex: Male
  Weight: 87.4 kg

DRUGS (1)
  1. ANDROGEL [Suspect]
     Active Substance: TESTOSTERONE
     Indication: Blood testosterone decreased
     Dosage: 2 PACKS
     Route: 061
     Dates: start: 2016

REACTIONS (12)
  - Renal cancer [Recovered/Resolved]
  - COVID-19 [Recovered/Resolved]
  - Deafness unilateral [Recovering/Resolving]
  - Hand fracture [Unknown]
  - Fall [Recovered/Resolved]
  - Pain [Not Recovered/Not Resolved]
  - Balance disorder [Recovering/Resolving]
  - Loss of personal independence in daily activities [Recovered/Resolved]
  - Joint injury [Unknown]
  - Arthralgia [Unknown]
  - Pain in extremity [Unknown]
  - Amnesia [Recovering/Resolving]

NARRATIVE: CASE EVENT DATE: 20200101
